FAERS Safety Report 6241161-1 (Version None)
Quarter: 2009Q2

REPORT INFORMATION
  Report Type: 
  Country: None (occurrence: None)
  Receive Date: 20090619
  Receipt Date: 20090619
  Transmission Date: 20091009
  Serious: Yes (Other)
  Sender: FDA-Public Use
  Company Number: None

PATIENT
  Age: 62 Year
  Sex: Female
  Weight: 58.9676 kg

DRUGS (1)
  1. GEL SWABS ZICAM [Suspect]
     Indication: NASOPHARYNGITIS

REACTIONS (2)
  - AGEUSIA [None]
  - ANOSMIA [None]
